FAERS Safety Report 12154170 (Version 1)
Quarter: 2016Q1

REPORT INFORMATION
  Report Type: Spontaneous
  Country: CN (occurrence: CN)
  Receive Date: 20160307
  Receipt Date: 20160307
  Transmission Date: 20160526
  Serious: Yes (Hospitalization)
  Sender: FDA-Public Use
  Company Number: CN-ROCHE-1717663

PATIENT
  Age: 43 Year
  Sex: Female

DRUGS (6)
  1. HERCEPTIN [Suspect]
     Active Substance: TRASTUZUMAB
     Indication: BREAST CANCER
     Route: 042
     Dates: start: 20140621
  2. CEFIXIME. [Concomitant]
     Active Substance: CEFIXIME
     Route: 042
  3. OSELTAMIVIR [Concomitant]
     Active Substance: OSELTAMIVIR
     Route: 048
  4. MOXIFLOXACIN. [Concomitant]
     Active Substance: MOXIFLOXACIN
     Route: 041
  5. HERCEPTIN [Suspect]
     Active Substance: TRASTUZUMAB
     Dosage: 8MG/KG FIRST DOSE
     Route: 042
     Dates: start: 20140621
  6. TOREMIFENE CITRATE [Concomitant]
     Active Substance: TOREMIFENE CITRATE
     Indication: BREAST CANCER
     Route: 048

REACTIONS (1)
  - Pneumonia [Recovered/Resolved]
